FAERS Safety Report 8018867-7 (Version None)
Quarter: 2012Q1

REPORT INFORMATION
  Report Type: 
  Country: None (occurrence: None)
  Receive Date: 20120103
  Receipt Date: 20111228
  Transmission Date: 20120608
  Serious: Yes (Death, Other)
  Sender: FDA-Public Use
  Company Number: US-PFIZER INC-2011315523

PATIENT
  Sex: Female
  Weight: 118 kg

DRUGS (2)
  1. PREMARIN [Suspect]
     Indication: NEOPLASM PROPHYLAXIS
  2. PREMARIN [Suspect]
     Indication: HYSTERECTOMY
     Dosage: UNK
     Route: 048

REACTIONS (3)
  - VULVAL CANCER [None]
  - ABDOMINAL WOUND DEHISCENCE [None]
  - PELVIC INFECTION [None]
